FAERS Safety Report 8965532 (Version 1)
Quarter: 2012Q4

REPORT INFORMATION
  Report Type: Spontaneous
  Country: US (occurrence: None)
  Receive Date: 20121212
  Receipt Date: 20121212
  Transmission Date: 20130627
  Serious: Yes (Life-Threatening, Other)
  Sender: FDA-Public Use
  Company Number: None

PATIENT
  Age: 33 Year
  Sex: Female
  Weight: 64.41 kg

DRUGS (2)
  1. MONTELUKAST [Suspect]
     Indication: ASTHMA
     Dosage: 1 pill (10 mg) 1/day
  2. MONTELUKAST [Suspect]
     Indication: MULTIPLE ALLERGIES
     Dosage: 1 pill (10 mg) 1/day

REACTIONS (3)
  - Product substitution issue [None]
  - Dyspnoea [None]
  - Hypersensitivity [None]
